FAERS Safety Report 18719483 (Version 1)
Quarter: 2021Q1

REPORT INFORMATION
  Report Type: Spontaneous
  Country: US (occurrence: US)
  Receive Date: 20210108
  Receipt Date: 20210108
  Transmission Date: 20210419
  Serious: Yes (Other)
  Sender: FDA-Public Use
  Company Number: US-009507513-2101USA001009

PATIENT
  Age: 43 Year
  Sex: Male

DRUGS (8)
  1. PRAVASTATIN. [Concomitant]
     Active Substance: PRAVASTATIN
     Dosage: 40 MILLIGRAM, QD
  2. BELSOMRA [Suspect]
     Active Substance: SUVOREXANT
     Dosage: 20 MILLIGRAM, QPM
     Dates: start: 202012, end: 20201230
  3. LEVOTHYROXINE SODIUM. [Concomitant]
     Active Substance: LEVOTHYROXINE SODIUM
     Dosage: 150 MICROGRAM, QD
  4. METOPROLOL. [Concomitant]
     Active Substance: METOPROLOL
     Dosage: 50 MILLIGRAM, QD
  5. BELSOMRA [Suspect]
     Active Substance: SUVOREXANT
     Indication: INSOMNIA
     Dosage: 15 MILLIGRAM, QPM
     Route: 048
     Dates: start: 20201214, end: 202012
  6. COZAAR [Concomitant]
     Active Substance: LOSARTAN POTASSIUM
     Dosage: 100 MILLIGRAM, QD
  7. CHLORTHALIDONE. [Concomitant]
     Active Substance: CHLORTHALIDONE
     Dosage: 25 MILLIGRAM
  8. GLYCOPYRROLATE. [Concomitant]
     Active Substance: GLYCOPYRROLATE
     Dosage: 2 MILLIGRAM, QD

REACTIONS (3)
  - Autoscopy [Recovered/Resolved]
  - Hallucination [Recovered/Resolved]
  - Drug ineffective [Unknown]

NARRATIVE: CASE EVENT DATE: 202012
